FAERS Safety Report 8458835-4 (Version None)
Quarter: 2012Q2

REPORT INFORMATION
  Report Type: 
  Country: None (occurrence: None)
  Receive Date: 20120622
  Receipt Date: 20120618
  Transmission Date: 20120825
  Serious: Yes (Other)
  Sender: FDA-Public Use
  Company Number: US-PFIZER INC-2012146694

PATIENT
  Sex: Male
  Weight: 61 kg

DRUGS (2)
  1. LYRICA [Suspect]
     Indication: NEUROPATHY PERIPHERAL
     Dosage: 50 MG, DAILY
     Route: 048
     Dates: start: 20120615
  2. DONEPEZIL [Concomitant]
     Indication: DEMENTIA
     Dosage: 10 MG, 2X/DAY

REACTIONS (4)
  - DISORIENTATION [None]
  - ACTIVITIES OF DAILY LIVING IMPAIRED [None]
  - APHASIA [None]
  - CONFUSIONAL STATE [None]
